FAERS Safety Report 15053308 (Version 6)
Quarter: 2018Q4

REPORT INFORMATION
  Report Type: Report from Study
  Country: None (occurrence: TR)
  Receive Date: 20180622
  Receipt Date: 20181227
  Transmission Date: 20190204
  Serious: Yes (Hospitalization)
  Sender: FDA-Public Use
  Company Number: TR-ABBVIE-18K-161-2397261-00

PATIENT
  Age: 62 Year
  Sex: Female
  Weight: 125 kg

DRUGS (6)
  1. DUODOPA [Suspect]
     Active Substance: CARBIDOPA\LEVODOPA
     Dosage: MD: 3.00 ML, CD: 3.00 ML, ED: 1.00 ML
     Route: 050
     Dates: start: 20180912
  2. DUODOPA [Suspect]
     Active Substance: CARBIDOPA\LEVODOPA
     Indication: PARKINSON^S DISEASE
     Dosage: MD: 4.50 ML, CD: 4.50 ML, ED: 1.50 ML
     Route: 050
     Dates: start: 20170724, end: 20180912
  3. NEURONTIN [Concomitant]
     Active Substance: GABAPENTIN
     Indication: NEURALGIA
  4. GYREX [Concomitant]
     Indication: HALLUCINATION
     Route: 048
  5. VASOCARD [Concomitant]
     Active Substance: AMLODIPINE BESYLATE
     Indication: THROMBOSIS PROPHYLAXIS
     Route: 048
  6. DUODOPA [Suspect]
     Active Substance: CARBIDOPA\LEVODOPA
     Dosage: MD: 4.50 ML, CD: 4.50 ML, ED: 1.50 ML
     Route: 050

REACTIONS (5)
  - Hallucination [Recovered/Resolved]
  - Pulmonary embolism [Recovered/Resolved]
  - Hallucination [Recovered/Resolved]
  - Expired product administered [Recovered/Resolved]
  - Dyspnoea [Recovered/Resolved]

NARRATIVE: CASE EVENT DATE: 20180621
